FAERS Safety Report 9454375 (Version 4)
Quarter: 2014Q1

REPORT INFORMATION
  Report Type: Spontaneous
  Country: GB (occurrence: GB)
  Receive Date: 20130812
  Receipt Date: 20140319
  Transmission Date: 20141002
  Serious: Yes (Hospitalization)
  Sender: FDA-Public Use
  Company Number: GB-PFIZER INC-2013230149

PATIENT
  Age: 50 Year
  Sex: Male

DRUGS (4)
  1. TAZOCIN [Suspect]
     Indication: PNEUMONIA STREPTOCOCCAL
     Dosage: UNK
     Route: 042
     Dates: start: 20130723, end: 20130725
  2. CLOZARIL [Suspect]
     Indication: SCHIZOPHRENIA
     Dosage: UNK
     Route: 048
     Dates: start: 20130725
  3. CLOZARIL [Suspect]
     Dosage: 450 MG, DAILY
     Route: 048
  4. CLOZARIL [Suspect]
     Dosage: UNK
     Route: 048
     Dates: start: 20100506

REACTIONS (5)
  - Mental disorder [Not Recovered/Not Resolved]
  - Pneumonia streptococcal [Recovered/Resolved]
  - Malaise [Recovered/Resolved]
  - Leukopenia [Recovered/Resolved]
  - Neutropenia [Recovered/Resolved]
